FAERS Safety Report 23469890 (Version 3)
Quarter: 2024Q1

REPORT INFORMATION
  Report Type: Other
  Country: IT (occurrence: None)
  Receive Date: 20240202
  Receipt Date: 20240326
  Transmission Date: 20240409
  Serious: Yes (Hospitalization)
  Sender: FDA-Public Use
  Company Number: IT-ROCHE-3500608

PATIENT
  Age: 59 Year
  Sex: Male
  Weight: 78 kg

DRUGS (14)
  1. GLOFITAMAB [Suspect]
     Active Substance: GLOFITAMAB
     Indication: Diffuse large B-cell lymphoma
     Route: 042
     Dates: start: 20230804
  2. OBINUTUZUMAB [Suspect]
     Active Substance: OBINUTUZUMAB
     Indication: Diffuse large B-cell lymphoma
     Route: 042
     Dates: start: 20230728
  3. PANTOPRAZOLE SODIUM [Concomitant]
     Active Substance: PANTOPRAZOLE SODIUM
  4. BACTRIM [Concomitant]
     Active Substance: SULFAMETHOXAZOLE\TRIMETHOPRIM
  5. METFORMIN [Concomitant]
     Active Substance: METFORMIN HYDROCHLORIDE
  6. VALACYCLOVIR HYDROCHLORIDE [Concomitant]
     Active Substance: VALACYCLOVIR HYDROCHLORIDE
  7. DIFLUCAN [Concomitant]
     Active Substance: FLUCONAZOLE
  8. OMEGA-3-ACID ETHYL ESTERS [Concomitant]
     Active Substance: OMEGA-3-ACID ETHYL ESTERS
  9. ATORVASTATIN [Concomitant]
     Active Substance: ATORVASTATIN
  10. RAMIPRIL [Concomitant]
     Active Substance: RAMIPRIL
  11. ISONIAZID [Concomitant]
     Active Substance: ISONIAZID
  12. PYRIDOXINE HYDROCHLORIDE [Concomitant]
     Active Substance: PYRIDOXINE HYDROCHLORIDE
  13. ALLOPURINOL [Concomitant]
     Active Substance: ALLOPURINOL
  14. ALFUZOSIN [Concomitant]
     Active Substance: ALFUZOSIN

REACTIONS (3)
  - Urinary tract infection [Not Recovered/Not Resolved]
  - Sepsis [Not Recovered/Not Resolved]
  - Pyelonephritis [Unknown]

NARRATIVE: CASE EVENT DATE: 20240125
